FAERS Safety Report 12163310 (Version 1)
Quarter: 2016Q1

REPORT INFORMATION
  Report Type: Spontaneous
  Country: US (occurrence: US)
  Receive Date: 20160309
  Receipt Date: 20160309
  Transmission Date: 20160526
  Serious: No
  Sender: FDA-Public Use
  Company Number: US-MYLANLABS-2016M1006354

PATIENT
  Age: 28 Year
  Sex: Female
  Weight: 49.89 kg

DRUGS (1)
  1. TARINA FE 1/20 [Suspect]
     Active Substance: ETHINYL ESTRADIOL\NORETHINDRONE ACETATE
     Indication: CONTRACEPTION
     Dosage: 1/0.02/75 MG, QD
     Route: 048
     Dates: start: 201512

REACTIONS (2)
  - Menstruation irregular [Recovered/Resolved]
  - Drug dose omission [Recovered/Resolved]

NARRATIVE: CASE EVENT DATE: 20151211
